FAERS Safety Report 5078031-0 (Version None)
Quarter: 2006Q3

REPORT INFORMATION
  Report Type: 
  Country: None (occurrence: None)
  Receive Date: 20060808
  Receipt Date: 20060726
  Transmission Date: 20061208
  Serious: Yes (Life-Threatening, Hospitalization)
  Sender: FDA-Public Use
  Company Number: 2006092925

PATIENT
  Age: 87 Year
  Sex: Female
  Weight: 58 kg

DRUGS (8)
  1. NEURONTIN [Suspect]
     Indication: PARTIAL SEIZURES
     Dosage: 600 MG (1D), ORAL
     Route: 048
  2. KEPPRA [Suspect]
     Indication: PARTIAL SEIZURES
     Dosage: 2000 MG (1 D), ORAL
     Route: 048
  3. LAMOTIGINE (LAMOTRIGINE) [Concomitant]
  4. BELOC-ZOC MITE (METROPOLOL SUCCINATE) [Concomitant]
  5. PLAVIX [Concomitant]
  6. DELIX PLUS (HYDROCHLOROTHIAZIDE, RAMIPRIL) [Concomitant]
  7. NITROFURANTOIN [Concomitant]
  8. NEXIUM [Concomitant]

REACTIONS (3)
  - GENERAL PHYSICAL HEALTH DETERIORATION [None]
  - HEPATITIS TOXIC [None]
  - JAUNDICE CHOLESTATIC [None]
